FAERS Safety Report 12194025 (Version 1)
Quarter: 2016Q1

REPORT INFORMATION
  Report Type: Spontaneous
  Country: US (occurrence: US)
  Receive Date: 20160321
  Receipt Date: 20160321
  Transmission Date: 20160526
  Serious: Yes (Other)
  Sender: FDA-Public Use
  Company Number: US-ROCHE-1727453

PATIENT
  Age: 10 Year
  Sex: Female

DRUGS (1)
  1. TAMIFLU [Suspect]
     Active Substance: OSELTAMIVIR PHOSPHATE
     Indication: INFLUENZA
     Route: 065
     Dates: start: 20160308, end: 20160310

REACTIONS (7)
  - Abnormal behaviour [Unknown]
  - Emotional distress [Unknown]
  - Genital burning sensation [Recovering/Resolving]
  - Pain [Recovering/Resolving]
  - Blister [Recovering/Resolving]
  - Genital discharge [Recovering/Resolving]
  - Pruritus genital [Recovering/Resolving]

NARRATIVE: CASE EVENT DATE: 20160309
